FAERS Safety Report 5205012-6 (Version None)
Quarter: 2007Q1

REPORT INFORMATION
  Report Type: 
  Country: None (occurrence: None)
  Receive Date: 20070110
  Receipt Date: 20061002
  Transmission Date: 20070707
  Serious: No
  Sender: FDA-Public Use
  Company Number: US-BRISTOL-MYERS SQUIBB COMPANY-13527676

PATIENT
  Age: 5 Year
  Sex: Male
  Weight: 28 kg

DRUGS (2)
  1. ABILIFY [Suspect]
     Indication: ATTENTION DEFICIT/HYPERACTIVITY DISORDER
     Dates: start: 20060923
  2. KIDZYME [Concomitant]

REACTIONS (1)
  - DRUG INEFFECTIVE [None]
